FAERS Safety Report 7964679-X (Version None)
Quarter: 2011Q4

REPORT INFORMATION
  Report Type: 
  Country: None (occurrence: None)
  Receive Date: 20111208
  Receipt Date: 20111129
  Transmission Date: 20120403
  Serious: Yes (Other)
  Sender: FDA-Public Use
  Company Number: DE-BAYER-2011-114817

PATIENT
  Sex: Male

DRUGS (2)
  1. MIRENA [Suspect]
     Indication: PRODUCT USED FOR UNKNOWN INDICATION
  2. OXYTOCIN [Concomitant]

REACTIONS (1)
  - ACOUSTIC STIMULATION TESTS ABNORMAL [None]
